FAERS Safety Report 19106986 (Version 1)
Quarter: 2021Q2

REPORT INFORMATION
  Report Type: Spontaneous
  Country: MX (occurrence: MX)
  Receive Date: 20210408
  Receipt Date: 20210408
  Transmission Date: 20210717
  Serious: Yes (Other)
  Sender: FDA-Public Use
  Company Number: MX-PFIZER INC-2021298669

PATIENT
  Age: 64 Year
  Sex: Female

DRUGS (1)
  1. TAFIL [Suspect]
     Active Substance: ALPRAZOLAM
     Indication: GINGIVAL DISCOMFORT
     Dosage: UNK

REACTIONS (3)
  - Poisoning [Unknown]
  - Drug ineffective for unapproved indication [Unknown]
  - Off label use [Unknown]
